FAERS Safety Report 8937175 (Version 1)
Quarter: 2012Q4

REPORT INFORMATION
  Report Type: Spontaneous
  Country: US (occurrence: None)
  Receive Date: 20121128
  Receipt Date: 20121128
  Transmission Date: 20130627
  Serious: Yes (Hospitalization)
  Sender: FDA-Public Use
  Company Number: None

PATIENT
  Age: 67 Year
  Sex: Male
  Weight: 108.86 kg

DRUGS (3)
  1. METHYLPREDNISOLONE [Suspect]
     Indication: ARTHRITIS
     Dosage: 19 as directed five days only
     Dates: start: 20121024, end: 20121029
  2. METHYLPREDNISOLONE [Suspect]
     Indication: SWELLING
     Dosage: 19 as directed five days only
     Dates: start: 20121024, end: 20121029
  3. METHYLPREDNISOLONE [Suspect]
     Dosage: 19 as directed five days only
     Dates: start: 20121024, end: 20121029

REACTIONS (5)
  - Abdominal pain upper [None]
  - Dyspepsia [None]
  - Dysphagia [None]
  - Nausea [None]
  - Oesophageal pain [None]
